FAERS Safety Report 5387440-1 (Version None)
Quarter: 2007Q3

REPORT INFORMATION
  Report Type: 
  Country: None (occurrence: None)
  Receive Date: 20070716
  Receipt Date: 20070707
  Transmission Date: 20080115
  Serious: Yes (Hospitalization)
  Sender: FDA-Public Use
  Company Number: PK-AVENTIS-200716156GDDC

PATIENT
  Age: 65 Year
  Sex: Male

DRUGS (2)
  1. FLAGYL [Suspect]
     Indication: LIVER ABSCESS
     Route: 042
     Dates: start: 20070706, end: 20070706
  2. ZANTAC [Concomitant]
     Dosage: DOSE QUANTITY: 1
     Route: 042
     Dates: start: 20070706, end: 20070707

REACTIONS (3)
  - CHILLS [None]
  - HYPERHIDROSIS [None]
  - PYREXIA [None]
